FAERS Safety Report 7804673-2 (Version None)
Quarter: 2011Q4

REPORT INFORMATION
  Report Type: 
  Country: None (occurrence: None)
  Receive Date: 20111010
  Receipt Date: 20110929
  Transmission Date: 20120403
  Serious: Yes (Other)
  Sender: FDA-Public Use
  Company Number: US-BAYER-2011-050648

PATIENT
  Sex: Male

DRUGS (2)
  1. COUMADIN [Concomitant]
  2. NEXAVAR [Suspect]
     Indication: PROSTATE CANCER
     Dosage: 200 MG, BID
     Dates: start: 20100928

REACTIONS (1)
  - MOUTH HAEMORRHAGE [None]
